FAERS Safety Report 7650527-4 (Version None)
Quarter: 2011Q3

REPORT INFORMATION
  Report Type: 
  Country: None (occurrence: None)
  Receive Date: 20110802
  Receipt Date: 20110610
  Transmission Date: 20111222
  Serious: Yes (Other)
  Sender: FDA-Public Use
  Company Number: IE-GLAXOSMITHKLINE-B0727000A

PATIENT
  Sex: Female
  Weight: 92.3 kg

DRUGS (2)
  1. BECLOMETHASONE DIPROPIONATE [Suspect]
     Indication: ASTHMA
     Dosage: 1000MCG PER DAY
     Route: 065
     Dates: start: 19700101
  2. AEROCHAMBER [Concomitant]

REACTIONS (7)
  - CHEST DISCOMFORT [None]
  - DYSPNOEA [None]
  - DRUG INEFFECTIVE [None]
  - RASH PRURITIC [None]
  - MALAISE [None]
  - PRODUCT QUALITY ISSUE [None]
  - ASTHENIA [None]
